FAERS Safety Report 24296873 (Version 1)
Quarter: 2024Q3

REPORT INFORMATION
  Report Type: Spontaneous
  Country: GB (occurrence: GB)
  Receive Date: 20240909
  Receipt Date: 20240909
  Transmission Date: 20241016
  Serious: Yes (Hospitalization, Other)
  Sender: MERCK
  Company Number: GB-009507513-2409GBR001203

PATIENT
  Age: 64 Year
  Sex: Male

DRUGS (1)
  1. PEMBROLIZUMAB [Suspect]
     Active Substance: PEMBROLIZUMAB
     Indication: Cholangiocarcinoma
     Dosage: UNK

REACTIONS (4)
  - Cardiogenic shock [Recovering/Resolving]
  - Immune-mediated myocarditis [Recovering/Resolving]
  - Liver injury [Recovering/Resolving]
  - Acute kidney injury [Recovering/Resolving]
